FAERS Safety Report 7110435-4 (Version None)
Quarter: 2010Q4

REPORT INFORMATION
  Report Type: 
  Country: None (occurrence: None)
  Receive Date: 20101118
  Receipt Date: 20101112
  Transmission Date: 20110411
  Serious: Yes (Hospitalization, Other)
  Sender: FDA-Public Use
  Company Number: JP-SHIRE-ALL1-2010-05692

PATIENT
  Sex: Female

DRUGS (18)
  1. FOSRENOL [Suspect]
     Indication: HYPERPHOSPHATAEMIA
     Dosage: UNK MG, UNKNOWN
     Route: 048
  2. 8-HOUR BAYER [Concomitant]
     Dosage: 100 MG, UNK
     Route: 048
  3. LIPITOR [Concomitant]
     Dosage: 10 MG, UNK
     Route: 048
  4. CONIEL [Concomitant]
     Dosage: 2 MG, UNK
     Route: 048
  5. PLAVIX [Concomitant]
     Dosage: 75 MG, UNK
     Route: 048
  6. TERNELIN [Concomitant]
     Dosage: 1 MG, UNK
     Route: 048
  7. PARIET [Concomitant]
     Dosage: 10 MG, UNK
     Route: 048
  8. ARGAMATE [Concomitant]
     Dosage: 25 G, UNK
     Route: 048
  9. NEUER [Concomitant]
     Dosage: 600 MG, UNK
     Route: 048
  10. DIOVAN [Concomitant]
     Dosage: 80 MG, UNK
     Route: 048
  11. VASOLAN                            /00014302/ [Concomitant]
     Dosage: 80 MG, UNK
     Route: 048
  12. AMLODIPINE [Concomitant]
     Dosage: 2.5 MG, UNK
     Route: 048
  13. TETRAMIDE [Concomitant]
     Dosage: 30 MG, UNK
     Route: 048
  14. RIVOTRIL [Concomitant]
     Dosage: 0.5 MG, UNK
     Route: 048
  15. LOXONIN [Concomitant]
     Dosage: 60 MG, AS REQ'D
     Route: 048
  16. CYTOTEC [Concomitant]
     Indication: PAIN
     Dosage: 200 UNK, AS REQ'D
     Route: 048
  17. LAXOBERON [Concomitant]
     Dosage: 10 GTT, AS REQ'D
     Route: 048
  18. KENEI GARGLE [Concomitant]
     Indication: CONSTIPATION
     Dosage: 60 ML, UNK
     Route: 054

REACTIONS (4)
  - ENTEROCOLITIS BACTERIAL [None]
  - FRACTURE [None]
  - WRONG TECHNIQUE IN DRUG USAGE PROCESS [None]
  - X-RAY ABNORMAL [None]
